APPROVED DRUG PRODUCT: LINAGLIPTIN
Active Ingredient: LINAGLIPTIN
Strength: 5MG
Dosage Form/Route: TABLET;ORAL
Application: A208335 | Product #001 | TE Code: AB
Applicant: SUNSHINE LAKE PHARMA CO LTD
Approved: Aug 31, 2021 | RLD: No | RS: No | Type: RX